FAERS Safety Report 18586705 (Version 7)
Quarter: 2021Q3

REPORT INFORMATION
  Report Type: Report from Study
  Country: US (occurrence: US)
  Receive Date: 20201207
  Receipt Date: 20210707
  Transmission Date: 20211014
  Serious: No
  Sender: FDA-Public Use
  Company Number: NVSC2020US325389

PATIENT
  Age: 45 Year
  Sex: Female

DRUGS (4)
  1. KESIMPTA [Suspect]
     Active Substance: OFATUMUMAB
     Indication: RELAPSING-REMITTING MULTIPLE SCLEROSIS
     Dosage: 20 MG, QMO (BENEATH THE SKIN)
     Route: 058
     Dates: start: 20201030
  2. KESIMPTA [Suspect]
     Active Substance: OFATUMUMAB
     Indication: SECONDARY PROGRESSIVE MULTIPLE SCLEROSIS
     Dosage: UNK, QMO
     Route: 058
     Dates: start: 202010
  3. KESIMPTA [Suspect]
     Active Substance: OFATUMUMAB
     Indication: MULTIPLE SCLEROSIS
     Dosage: UNK, QMO
     Route: 058
     Dates: start: 202010
  4. KESIMPTA [Suspect]
     Active Substance: OFATUMUMAB
     Indication: CLINICALLY ISOLATED SYNDROME

REACTIONS (14)
  - Neuralgia [Unknown]
  - Urinary incontinence [Unknown]
  - Bladder spasm [Unknown]
  - Visual field defect [Unknown]
  - Dyschezia [Unknown]
  - Nervousness [Unknown]
  - Pain [Unknown]
  - COVID-19 [Recovered/Resolved]
  - Hypoaesthesia [Unknown]
  - Headache [Unknown]
  - Micturition urgency [Unknown]
  - Pollakiuria [Unknown]
  - Balance disorder [Unknown]
  - Inappropriate schedule of product administration [Unknown]

NARRATIVE: CASE EVENT DATE: 202010
